FAERS Safety Report 21589526 (Version 1)
Quarter: 2022Q4

REPORT INFORMATION
  Report Type: Spontaneous
  Country: US (occurrence: US)
  Receive Date: 20221114
  Receipt Date: 20221114
  Transmission Date: 20230112
  Serious: Yes (Disabling, Other)
  Sender: FDA-Public Use
  Company Number: US-SA-SAC20221111000697

PATIENT
  Age: 68 Year
  Sex: Female

DRUGS (9)
  1. DUPIXENT [Suspect]
     Active Substance: DUPILUMAB
     Indication: Dermatitis atopic
     Dosage: 1 DF, QOW
     Route: 058
     Dates: start: 20220809
  2. TRAZODONE [Concomitant]
     Active Substance: TRAZODONE HYDROCHLORIDE
  3. PREDNISONE [Concomitant]
     Active Substance: PREDNISONE
  4. OXYCODONE [Concomitant]
     Active Substance: OXYCODONE
  5. KETOCONAZOLE [Concomitant]
     Active Substance: KETOCONAZOLE
  6. HYDROCORTISONE [Concomitant]
     Active Substance: HYDROCORTISONE
  7. CLOBETASOL [Concomitant]
     Active Substance: CLOBETASOL
  8. ATORVASTATIN [Concomitant]
     Active Substance: ATORVASTATIN
  9. VALACYCLOVIR [Concomitant]
     Active Substance: VALACYCLOVIR HYDROCHLORIDE

REACTIONS (3)
  - Deafness [Unknown]
  - Vestibular disorder [Unknown]
  - Sinusitis [Unknown]

NARRATIVE: CASE EVENT DATE: 20221108
